FAERS Safety Report 14463429 (Version 3)
Quarter: 2021Q1

REPORT INFORMATION
  Report Type: Other
  Country: US (occurrence: US)
  Receive Date: 20180130
  Receipt Date: 20210125
  Transmission Date: 20210419
  Serious: No
  Sender: FDA-Public Use
  Company Number: US-ACORDA-ACO_133496_2017

PATIENT
  Age: 62 Year
  Sex: Female

DRUGS (1)
  1. AMPYRA [Suspect]
     Active Substance: DALFAMPRIDINE
     Indication: MULTIPLE SCLEROSIS
     Dosage: 10 MILLIGRAM, Q 12 HRS
     Route: 048

REACTIONS (9)
  - Therapy interrupted [Unknown]
  - Balance disorder [Unknown]
  - Urinary tract infection [Unknown]
  - Adverse event [Unknown]
  - Coordination abnormal [Unknown]
  - Product dose omission issue [Unknown]
  - Food intolerance [Recovering/Resolving]
  - Vomiting [Recovering/Resolving]
  - Therapy cessation [Unknown]

NARRATIVE: CASE EVENT DATE: 20190918
